FAERS Safety Report 9829852 (Version 1)
Quarter: 2014Q1

REPORT INFORMATION
  Report Type: Spontaneous
  Country: US (occurrence: US)
  Receive Date: 20140120
  Receipt Date: 20140120
  Transmission Date: 20141002
  Serious: No
  Sender: FDA-Public Use
  Company Number: US-BAYER-2014-009165

PATIENT
  Sex: Male

DRUGS (8)
  1. BETASERON [Suspect]
     Indication: MULTIPLE SCLEROSIS
     Dosage: UNK UNK, QOD
     Dates: start: 1993, end: 201401
  2. DIOVAN [Concomitant]
  3. FISH OIL [Concomitant]
  4. GEMFIBROZIL [Concomitant]
  5. MECLIZINE [Concomitant]
  6. PRIMIDONE [Concomitant]
  7. VITAMIN C [Concomitant]
  8. VITAMIN D3 [Concomitant]

REACTIONS (2)
  - Injection site pain [Not Recovered/Not Resolved]
  - Injection site induration [Not Recovered/Not Resolved]
